FAERS Safety Report 11073632 (Version 1)
Quarter: 2015Q2

REPORT INFORMATION
  Report Type: Spontaneous
  Country: GB (occurrence: GB)
  Receive Date: 20150428
  Receipt Date: 20150428
  Transmission Date: 20150821
  Serious: Yes (Death, Hospitalization)
  Sender: FDA-Public Use
  Company Number: PHFR1978GB00213

PATIENT
  Age: 49 Year
  Sex: Female

DRUGS (2)
  1. TUINAL [Concomitant]
     Active Substance: AMOBARBITAL\SECOBARBITAL
     Route: 065
  2. IMIPRAMINE [Suspect]
     Active Substance: IMIPRAMINE
     Indication: DEPRESSION
     Route: 065

REACTIONS (18)
  - Cystitis [Unknown]
  - Muscle twitching [Fatal]
  - Intentional overdose [Unknown]
  - Mania [Fatal]
  - Depressed level of consciousness [Fatal]
  - Speech disorder [Fatal]
  - Confusional state [Fatal]
  - Bronchopneumonia [Unknown]
  - Cardiac arrest [Fatal]
  - Toxicity to various agents [Fatal]
  - Loss of consciousness [Fatal]
  - Unresponsive to stimuli [Fatal]
  - Restlessness [Fatal]
  - Agitation [Fatal]
  - Pyrexia [Fatal]
  - Flight of ideas [Fatal]
  - Elevated mood [Fatal]
  - Epilepsy [Fatal]

NARRATIVE: CASE EVENT DATE: 196703
